FAERS Safety Report 16859733 (Version 1)
Quarter: 2019Q4

REPORT INFORMATION
  Report Type: Spontaneous
  Country: US (occurrence: US)
  Receive Date: 20190926
  Receipt Date: 20190926
  Transmission Date: 20200122
  Serious: Yes (Disabling)
  Sender: FDA-Public Use
  Company Number: None

PATIENT
  Age: 54 Year
  Sex: Female
  Weight: 75.6 kg

DRUGS (11)
  1. LEVOTHYROXINE. [Concomitant]
     Active Substance: LEVOTHYROXINE
  2. DAILY VITAMIN [Concomitant]
     Active Substance: VITAMINS
  3. OTEZLA [Suspect]
     Active Substance: APREMILAST
     Indication: PSORIATIC ARTHROPATHY
     Dosage: ?          QUANTITY:1 TABLET(S);?
     Route: 048
  4. NARATRIPTAN [Concomitant]
     Active Substance: NARATRIPTAN HYDROCHLORIDE
  5. RANITIDINE. [Concomitant]
     Active Substance: RANITIDINE
  6. GENTEAL NIGHTTIME LUBRICANT EYE DROPS [Concomitant]
  7. REFRESH OPTIVE EYE DROPS [Concomitant]
  8. IMODIUM [Concomitant]
     Active Substance: LOPERAMIDE HYDROCHLORIDE
  9. FISH OIL OMEGA-3 SUPPLEMENT [Concomitant]
  10. NAPROXEN. [Concomitant]
     Active Substance: NAPROXEN
  11. CLARITIN-D NOS [Concomitant]
     Active Substance: LORATADINE\PSEUDOEPHEDRINE SULFATE

REACTIONS (19)
  - Nausea [None]
  - Vomiting [None]
  - Myalgia [None]
  - Sinus headache [None]
  - Arthralgia [None]
  - Psoriasis [None]
  - Diarrhoea [None]
  - Eye inflammation [None]
  - Neuralgia [None]
  - Headache [None]
  - Sinus congestion [None]
  - Muscle spasms [None]
  - Abdominal pain upper [None]
  - Visual impairment [None]
  - Eye pain [None]
  - Gastrooesophageal reflux disease [None]
  - Depression [None]
  - Paraesthesia [None]
  - Ear pain [None]

NARRATIVE: CASE EVENT DATE: 20190911
